FAERS Safety Report 14016022 (Version 1)
Quarter: 2017Q3

REPORT INFORMATION
  Report Type: Spontaneous
  Country: JP (occurrence: JP)
  Receive Date: 20170927
  Receipt Date: 20170927
  Transmission Date: 20171128
  Serious: Yes (Other)
  Sender: FDA-Public Use
  Company Number: JP-PFIZER INC-2017408009

PATIENT

DRUGS (1)
  1. DIFLUCAN [Suspect]
     Active Substance: FLUCONAZOLE
     Dosage: UNK
     Route: 048

REACTIONS (2)
  - Bradycardia [Unknown]
  - Cardiac failure [Unknown]
